FAERS Safety Report 22247731 (Version 1)
Quarter: 2023Q2

REPORT INFORMATION
  Report Type: Spontaneous
  Country: US (occurrence: US)
  Receive Date: 20230425
  Receipt Date: 20230425
  Transmission Date: 20230721
  Serious: No
  Sender: FDA-Public Use
  Company Number: US-ABBVIE-4719928

PATIENT
  Age: 72 Year
  Sex: Male
  Weight: 86.182 kg

DRUGS (3)
  1. SYNTHROID [Suspect]
     Active Substance: LEVOTHYROXINE SODIUM
     Indication: Autoimmune thyroiditis
     Dosage: 88 MICROGRAM
     Route: 048
     Dates: start: 20230404
  2. SYNTHROID [Suspect]
     Active Substance: LEVOTHYROXINE SODIUM
     Indication: Autoimmune thyroiditis
     Dosage: 100 MICROGRAM
     Route: 048
     Dates: start: 2008, end: 20230404
  3. HYDROCORTISONE [Concomitant]
     Active Substance: HYDROCORTISONE
     Indication: Adrenal insufficiency

REACTIONS (1)
  - Thyroxine decreased [Unknown]

NARRATIVE: CASE EVENT DATE: 20230329
